FAERS Safety Report 9905569 (Version 1)
Quarter: 2014Q1

REPORT INFORMATION
  Report Type: Spontaneous
  Country: GB (occurrence: GB)
  Receive Date: 20140218
  Receipt Date: 20140218
  Transmission Date: 20141002
  Serious: Yes (Other)
  Sender: FDA-Public Use
  Company Number: GB-GLAXOSMITHKLINE-B0968077A

PATIENT
  Sex: Female

DRUGS (6)
  1. CICLOSPORIN [Suspect]
     Indication: CHRONIC SPONTANEOUS URTICARIA
     Dates: start: 201310
  2. FEXOFENADINE HYDROCHLORIDE [Suspect]
     Indication: CHRONIC SPONTANEOUS URTICARIA
  3. CETIRIZINE [Suspect]
     Indication: CHRONIC SPONTANEOUS URTICARIA
  4. RANITIDINE [Suspect]
     Indication: CHRONIC SPONTANEOUS URTICARIA
     Dosage: 300MG PER DAY
  5. MONTELUKAST SODIUM [Suspect]
     Indication: CHRONIC SPONTANEOUS URTICARIA
  6. HYDROXYZINE [Suspect]
     Indication: CHRONIC SPONTANEOUS URTICARIA

REACTIONS (6)
  - Angioedema [Unknown]
  - Pruritus [Unknown]
  - Insomnia [Unknown]
  - Condition aggravated [Recovering/Resolving]
  - Chronic spontaneous urticaria [Recovering/Resolving]
  - Drug ineffective [Unknown]
